FAERS Safety Report 16821331 (Version 1)
Quarter: 2019Q3

REPORT INFORMATION
  Report Type: Spontaneous
  Country: PL (occurrence: PL)
  Receive Date: 20190918
  Receipt Date: 20190918
  Transmission Date: 20191005
  Serious: Yes (Other)
  Sender: FDA-Public Use
  Company Number: PHHY2019PL213368

PATIENT
  Age: 48 Year
  Sex: Male

DRUGS (1)
  1. IMATINIB. [Suspect]
     Active Substance: IMATINIB MESYLATE
     Indication: PRODUCT USED FOR UNKNOWN INDICATION
     Dosage: 400 MG, UNK (1X1)
     Route: 065

REACTIONS (6)
  - Agranulocytosis [Unknown]
  - Bone marrow tumour cell infiltration [Unknown]
  - General symptom [Unknown]
  - Hepatosplenomegaly [Unknown]
  - Disease progression [Unknown]
  - Anaemia [Unknown]
